FAERS Safety Report 7612759-0 (Version None)
Quarter: 2011Q3

REPORT INFORMATION
  Report Type: 
  Country: None (occurrence: None)
  Receive Date: 20110708
  Receipt Date: 20110620
  Transmission Date: 20111222
  Serious: Yes (Hospitalization)
  Sender: FDA-Public Use
  Company Number: JP-20110022

PATIENT
  Age: 73 Year
  Sex: Male

DRUGS (5)
  1. CLOPIDOGREL [Concomitant]
  2. ACETYLSALICYLIC ACID SRT [Concomitant]
  3. AMLODIPINE BESYLATE [Concomitant]
  4. HEXABRIX [Suspect]
     Indication: ARTERIOGRAM CORONARY
     Dosage: 100 ML (100 ML, 1 IN 1 D), INTRA-ARTERIAL
     Route: 013
     Dates: start: 20110601, end: 20110601
  5. HEPARIN SODIUM [Concomitant]

REACTIONS (1)
  - PLATELET COUNT DECREASED [None]
